FAERS Safety Report 15416023 (Version 1)
Quarter: 2018Q3

REPORT INFORMATION
  Report Type: Spontaneous
  Country: DE (occurrence: DE)
  Receive Date: 20180923
  Receipt Date: 20180923
  Transmission Date: 20181010
  Serious: Yes (Hospitalization)
  Sender: FDA-Public Use
  Company Number: DE-TORRENT-00010181

PATIENT
  Age: 35 Year
  Sex: Female

DRUGS (1)
  1. RISPERIDON [Suspect]
     Active Substance: RISPERIDONE
     Indication: PRODUCT USED FOR UNKNOWN INDICATION
     Dosage: UNKNOWN
     Route: 048
     Dates: start: 20180103, end: 20180122

REACTIONS (3)
  - Ileus [Recovered/Resolved]
  - Blood prolactin increased [Unknown]
  - Subileus [Recovered/Resolved]

NARRATIVE: CASE EVENT DATE: 201801
